FAERS Safety Report 23585328 (Version 1)
Quarter: 2024Q1

REPORT INFORMATION
  Report Type: Spontaneous
  Country: DK (occurrence: DK)
  Receive Date: 20240301
  Receipt Date: 20240301
  Transmission Date: 20240409
  Serious: Yes (Other)
  Sender: FDA-Public Use
  Company Number: None

PATIENT
  Age: 69 Year
  Sex: Male
  Weight: 89 kg

DRUGS (3)
  1. TADALAFIL [Suspect]
     Active Substance: TADALAFIL
     Indication: Micturition disorder
     Dosage: 5 MILLIGRAM, QD (STRENGTH 5 MG)
     Route: 048
     Dates: start: 202308
  2. TADALAFIL [Suspect]
     Active Substance: TADALAFIL
     Indication: Erectile dysfunction
  3. Hjertemagnyl [Concomitant]
     Indication: Thrombosis prophylaxis
     Dosage: STRENGTH: 75MG
     Route: 065
     Dates: start: 20180925

REACTIONS (2)
  - Atrial fibrillation [Unknown]
  - Paraesthesia [Unknown]

NARRATIVE: CASE EVENT DATE: 20230901
